FAERS Safety Report 6974448-5 (Version None)
Quarter: 2010Q3

REPORT INFORMATION
  Report Type: 
  Country: None (occurrence: None)
  Receive Date: 20100909
  Receipt Date: 20080304
  Transmission Date: 20110219
  Serious: No
  Sender: FDA-Public Use
  Company Number: US-WYE-H02975108

PATIENT
  Sex: Female
  Weight: 59.02 kg

DRUGS (5)
  1. PROTONIX [Suspect]
     Dosage: DOSE AND FREQUENCY UNSPECIFIED
     Route: 048
     Dates: start: 20000101
  2. METOPROLOL TARTRATE [Concomitant]
  3. EVISTA [Concomitant]
  4. OMEPRAZOLE [Concomitant]
  5. LOVASTATIN [Concomitant]

REACTIONS (1)
  - OSTEOPOROSIS [None]
